FAERS Safety Report 9065551 (Version 1)
Quarter: 2013Q1

REPORT INFORMATION
  Report Type: Spontaneous
  Country: US (occurrence: US)
  Receive Date: 20130131
  Receipt Date: 20130131
  Transmission Date: 20140127
  Serious: No
  Sender: FDA-Public Use
  Company Number: US-ABBOTT-12P-163-1023195-00

PATIENT
  Sex: Female
  Weight: 68.1 kg

DRUGS (6)
  1. HUMIRA [Suspect]
     Indication: CROHN^S DISEASE
     Dates: start: 201204, end: 201204
  2. HUMIRA [Suspect]
     Dosage: TWO WEEKS AFTER 80 MG DOSES
     Dates: start: 2012
  3. LEVOTHYROXINE [Concomitant]
     Indication: HYPOTHYROIDISM
  4. FLUOXETINE [Concomitant]
     Indication: DEPRESSION
  5. LORATADINE [Concomitant]
     Indication: SINUS DISORDER
  6. IBUPROFEN [Concomitant]
     Indication: PAIN

REACTIONS (2)
  - Injection site haemorrhage [Not Recovered/Not Resolved]
  - Incorrect dose administered [Recovered/Resolved]
